FAERS Safety Report 23040586 (Version 1)
Quarter: 2023Q4

REPORT INFORMATION
  Report Type: Spontaneous
  Country: TR (occurrence: TR)
  Receive Date: 20231006
  Receipt Date: 20231006
  Transmission Date: 20240110
  Serious: Yes (Other)
  Sender: FDA-Public Use
  Company Number: TR-ORGANON-O2310TUR000894

PATIENT
  Age: 21 Month
  Sex: Female

DRUGS (2)
  1. MONTELUKAST SODIUM [Suspect]
     Active Substance: MONTELUKAST SODIUM
     Indication: Asthma
     Dosage: 4 MG/DAY
     Route: 048
  2. MONTELUKAST SODIUM [Suspect]
     Active Substance: MONTELUKAST SODIUM
     Indication: Bronchiolitis

REACTIONS (3)
  - Psychotic symptom [Recovering/Resolving]
  - Incorrect product formulation administered [Unknown]
  - Product use in unapproved indication [Unknown]
